FAERS Safety Report 8592065-0 (Version None)
Quarter: 2012Q3

REPORT INFORMATION
  Report Type: 
  Country: None (occurrence: None)
  Receive Date: 20120814
  Receipt Date: 20120807
  Transmission Date: 20120928
  Serious: Yes (Other)
  Sender: FDA-Public Use
  Company Number: JP-ASTELLAS-2012JP006483

PATIENT
  Sex: Male

DRUGS (4)
  1. MYRBETRIQ [Suspect]
     Indication: DYSURIA
     Dosage: 50 MG, UID/QD
     Route: 048
     Dates: start: 20120608, end: 20120619
  2. EVIPROSTAT                         /00833501/ [Concomitant]
     Indication: DYSURIA
     Dosage: 1 DF, TID
     Route: 048
     Dates: start: 20120608
  3. LEUPROLIDE ACETATE [Concomitant]
     Indication: PROSTATE CANCER
     Dosage: UNK
     Route: 065
     Dates: start: 20100118
  4. URIEF [Concomitant]
     Indication: DYSURIA
     Dosage: 4 MG, BID
     Route: 048
     Dates: start: 20111207

REACTIONS (1)
  - DYSURIA [None]
